FAERS Safety Report 8159334-X (Version None)
Quarter: 2012Q1

REPORT INFORMATION
  Report Type: 
  Country: None (occurrence: None)
  Receive Date: 20120217
  Receipt Date: 20120210
  Transmission Date: 20120608
  Serious: Yes (Other)
  Sender: FDA-Public Use
  Company Number: ADR-2012-00327

PATIENT
  Age: 49 Year
  Sex: Male

DRUGS (1)
  1. LIORESAL [Suspect]
     Dosage: SEE IMAGE

REACTIONS (7)
  - MUSCLE SPASTICITY [None]
  - HYPOTONIA [None]
  - BLOOD SODIUM DECREASED [None]
  - CONDITION AGGRAVATED [None]
  - BLOOD CREATINE PHOSPHOKINASE INCREASED [None]
  - IMPLANT SITE FIBROSIS [None]
  - BODY TEMPERATURE DECREASED [None]
